FAERS Safety Report 5149097-4 (Version None)
Quarter: 2006Q4

REPORT INFORMATION
  Report Type: 
  Country: None (occurrence: None)
  Receive Date: 20061113
  Receipt Date: 20061031
  Transmission Date: 20070319
  Serious: Yes (Hospitalization, Disabling)
  Sender: FDA-Public Use
  Company Number: FRWYE373531OCT06

PATIENT
  Age: 67 Year
  Sex: Male

DRUGS (6)
  1. ENBREL [Suspect]
     Indication: DRUG USE FOR UNKNOWN INDICATION
     Dosage: 2 DOSES TOTAL WEEKLY
     Route: 058
     Dates: start: 20051206
  2. METHOTREXATE [Concomitant]
     Indication: MUSCULOSKELETAL PAIN
     Dosage: 7.5 MG TOTAL WEEKLY
     Route: 048
     Dates: start: 20051001, end: 20060501
  3. CORDARONE [Concomitant]
     Indication: ARRHYTHMIA
     Dosage: 200 MG; FREQUENCY UNSPEC.
     Route: 048
     Dates: start: 20060501
  4. ALDACTONE [Concomitant]
     Indication: ESSENTIAL HYPERTENSION
     Dosage: 100 MG; FREQUENCY UNSPEC.
     Route: 048
  5. ATACAND [Concomitant]
     Indication: ESSENTIAL HYPERTENSION
     Dosage: UNKNOWN
     Route: 048
  6. ACTONEL [Concomitant]
     Indication: MUSCULOSKELETAL PAIN
     Dosage: UNKNOWN
     Route: 048

REACTIONS (4)
  - METASTASES TO LIVER [None]
  - PANCREATIC CARCINOMA METASTATIC [None]
  - PULMONARY EMBOLISM [None]
  - THROMBOPHLEBITIS [None]
